FAERS Safety Report 4454502-2 (Version None)
Quarter: 2004Q3

REPORT INFORMATION
  Report Type: 
  Country: None (occurrence: None)
  Receive Date: 20040921
  Receipt Date: 20040909
  Transmission Date: 20050211
  Serious: Yes (Other)
  Sender: FDA-Public Use
  Company Number: JP-JNJFOC-20040902833

PATIENT
  Age: 75 Year
  Sex: Male

DRUGS (1)
  1. TAVANIC [Suspect]
     Indication: CELLULITIS
     Dosage: 1 TABLET
     Route: 049
     Dates: start: 20040802, end: 20040806

REACTIONS (3)
  - DIPLOPIA [None]
  - VISION BLURRED [None]
  - VISUAL DISTURBANCE [None]
